FAERS Safety Report 4983581-9 (Version None)
Quarter: 2006Q2

REPORT INFORMATION
  Report Type: 
  Country: None (occurrence: None)
  Receive Date: 20060425
  Receipt Date: 20060425
  Transmission Date: 20061013
  Serious: Yes (Other)
  Sender: FDA-Public Use
  Company Number: None

PATIENT
  Age: 80 Year
  Sex: Male
  Weight: 91.2 kg

DRUGS (4)
  1. LISINOPRIL [Suspect]
  2. MELOXICAM [Concomitant]
  3. FLUNISOLIDE INH [Concomitant]
  4. OMEPRAZOLE [Concomitant]

REACTIONS (1)
  - RASH [None]
